FAERS Safety Report 11966584 (Version 1)
Quarter: 2016Q1

REPORT INFORMATION
  Report Type: Other
  Country: US (occurrence: US)
  Receive Date: 20160127
  Receipt Date: 20160127
  Transmission Date: 20160526
  Serious: Yes (Other)
  Sender: FDA-Public Use
  Company Number: US-AKRON, INC.-1046965

PATIENT
  Age: 11 Year
  Sex: Female

DRUGS (1)
  1. DEXMEDETOMIDINE INJ [Suspect]
     Active Substance: DEXMEDETOMIDINE

REACTIONS (6)
  - Headache [None]
  - Withdrawal hypertension [None]
  - Irritability [None]
  - Withdrawal syndrome [None]
  - Agitation [None]
  - Posterior reversible encephalopathy syndrome [Unknown]
